FAERS Safety Report 19757185 (Version 2)
Quarter: 2021Q3

REPORT INFORMATION
  Report Type: Report from Study
  Country: None (occurrence: US)
  Receive Date: 20210827
  Receipt Date: 20210907
  Transmission Date: 20211014
  Serious: Yes (Hospitalization, Other)
  Sender: FDA-Public Use
  Company Number: US-ABBVIE-21K-163-4055329-00

PATIENT
  Age: 45 Year
  Sex: Female
  Weight: 72.64 kg

DRUGS (1)
  1. SKYRIZI [Suspect]
     Active Substance: RISANKIZUMAB-RZAA
     Indication: PSORIASIS
     Route: 058
     Dates: start: 202103, end: 20210411

REACTIONS (4)
  - Neoplasm malignant [Unknown]
  - Abdominal pain [Not Recovered/Not Resolved]
  - Blood urine present [Unknown]
  - Renal cancer [Recovered/Resolved]

NARRATIVE: CASE EVENT DATE: 202106
